FAERS Safety Report 24168173 (Version 1)
Quarter: 2024Q3

REPORT INFORMATION
  Report Type: Spontaneous
  Country: JP (occurrence: JP)
  Receive Date: 20240802
  Receipt Date: 20240802
  Transmission Date: 20241016
  Serious: Yes (Hospitalization)
  Sender: BIOCON
  Company Number: JP-BIOCON BIOLOGICS LIMITED-BBL2024004818

PATIENT

DRUGS (1)
  1. ADALIMUMAB [Suspect]
     Active Substance: ADALIMUMAB
     Indication: Rheumatoid arthritis
     Dosage: 40 MG, Q2W (40 MG INJECTION MG PEN 0.8 ML AUTO INJECTOR)
     Route: 058
     Dates: start: 202308, end: 202405

REACTIONS (2)
  - Humerus fracture [Unknown]
  - Pleural thickening [Recovering/Resolving]
